FAERS Safety Report 19458795 (Version 1)
Quarter: 2021Q2

REPORT INFORMATION
  Report Type: Spontaneous
  Country: CA (occurrence: CA)
  Receive Date: 20210624
  Receipt Date: 20210624
  Transmission Date: 20210717
  Serious: Yes (Hospitalization)
  Sender: FDA-Public Use
  Company Number: CA-ROCHE-2853390

PATIENT
  Age: 48 Year
  Sex: Female

DRUGS (15)
  1. RITUXIMAB. [Suspect]
     Active Substance: RITUXIMAB
     Indication: VASCULITIS
     Route: 042
  2. CALCIUM [Concomitant]
     Active Substance: CALCIUM
     Route: 065
  3. GABAPENTIN. [Concomitant]
     Active Substance: GABAPENTIN
  4. RITUXIMAB. [Suspect]
     Active Substance: RITUXIMAB
     Indication: RHEUMATOID ARTHRITIS
  5. LORAZEPAM. [Concomitant]
     Active Substance: LORAZEPAM
  6. OXYCONTIN [Concomitant]
     Active Substance: OXYCODONE HYDROCHLORIDE
     Route: 065
  7. RITUXIMAB. [Suspect]
     Active Substance: RITUXIMAB
     Indication: VASCULITIS
     Route: 065
  8. BENADRYL [Concomitant]
     Active Substance: DIPHENHYDRAMINE HYDROCHLORIDE
     Indication: PREMEDICATION
     Route: 048
  9. TYLENOL [Concomitant]
     Active Substance: ACETAMINOPHEN
     Indication: PREMEDICATION
     Route: 048
  10. DEXAMETHASONE. [Concomitant]
     Active Substance: DEXAMETHASONE
     Route: 065
  11. INSULIN [Concomitant]
     Active Substance: INSULIN NOS
     Route: 065
  12. METHYLPREDNISOLONE SODIUM SUCCINATE. [Concomitant]
     Active Substance: METHYLPREDNISOLONE SODIUM SUCCINATE
     Indication: PREMEDICATION
     Route: 042
  13. AMITRIPTYLINE [Concomitant]
     Active Substance: AMITRIPTYLINE
     Route: 065
  14. RITUXIMAB. [Suspect]
     Active Substance: RITUXIMAB
     Indication: RHEUMATOID ARTHRITIS
  15. VITAMIN C [Concomitant]
     Active Substance: ASCORBIC ACID
     Route: 065

REACTIONS (2)
  - Pulmonary embolism [Unknown]
  - Ill-defined disorder [Unknown]
